FAERS Safety Report 18240300 (Version 1)
Quarter: 2020Q3

REPORT INFORMATION
  Report Type: Report from Study
  Country: None (occurrence: US)
  Receive Date: 20200908
  Receipt Date: 20200908
  Transmission Date: 20201103
  Serious: Yes (Hospitalization, Other)
  Sender: FDA-Public Use
  Company Number: US-ABBVIE-20K-163-3516176-00

PATIENT
  Age: 40 Year
  Sex: Female

DRUGS (7)
  1. ATIVAN [Concomitant]
     Active Substance: LORAZEPAM
     Indication: ANXIETY
  2. PREDNISONE. [Concomitant]
     Active Substance: PREDNISONE
     Indication: COLITIS ULCERATIVE
  3. NORTRIPTYLINE [Concomitant]
     Active Substance: NORTRIPTYLINE
     Indication: DEPRESSION
  4. OMEPRAZOLE. [Concomitant]
     Active Substance: OMEPRAZOLE
     Indication: GASTROOESOPHAGEAL REFLUX DISEASE
  5. ESCITALOPRAM [Concomitant]
     Active Substance: ESCITALOPRAM OXALATE
     Indication: ANXIETY
  6. HUMIRA [Suspect]
     Active Substance: ADALIMUMAB
     Indication: COLITIS ULCERATIVE
     Route: 058
     Dates: start: 20200806, end: 20200807
  7. HUMIRA [Suspect]
     Active Substance: ADALIMUMAB
     Route: 058
     Dates: start: 20200827, end: 20200827

REACTIONS (11)
  - Pulmonary mass [Not Recovered/Not Resolved]
  - Vascular access site thrombosis [Recovering/Resolving]
  - Colitis [Unknown]
  - Incorrect dose administered [Recovered/Resolved]
  - Fluid intake reduced [Recovered/Resolved]
  - Hypoaesthesia [Recovering/Resolving]
  - Deep vein thrombosis [Not Recovered/Not Resolved]
  - Colitis ulcerative [Unknown]
  - Hypophagia [Recovered/Resolved]
  - Wrong technique in product usage process [Recovered/Resolved]
  - Peripheral swelling [Recovering/Resolving]

NARRATIVE: CASE EVENT DATE: 202008
